FAERS Safety Report 7263554-6 (Version None)
Quarter: 2011Q1

REPORT INFORMATION
  Report Type: 
  Country: None (occurrence: None)
  Receive Date: 20110130
  Receipt Date: 20101027
  Transmission Date: 20110831
  Serious: No
  Sender: FDA-Public Use
  Company Number: US-ABBOTT-10P-163-0681854-00

PATIENT
  Age: 56 Year
  Sex: Male

DRUGS (7)
  1. ATENOLOL [Concomitant]
     Indication: CORONARY ARTERIAL STENT INSERTION
  2. LIPITOR [Concomitant]
     Indication: BLOOD CHOLESTEROL INCREASED
  3. HUMIRA [Suspect]
     Indication: PSORIASIS
     Dates: start: 20100630
  4. ANTARA (MICRONIZED) [Concomitant]
     Indication: BLOOD CHOLESTEROL INCREASED
  5. PLAVIX [Concomitant]
     Indication: CORONARY ARTERIAL STENT INSERTION
  6. VITAMIN D [Concomitant]
     Indication: VITAMIN SUPPLEMENTATION
  7. FISH OIL [Concomitant]
     Indication: MINERAL SUPPLEMENTATION

REACTIONS (4)
  - NEPHROLITHIASIS [None]
  - INJECTION SITE RASH [None]
  - INJECTION SITE PRURITUS [None]
  - INJECTION SITE ERYTHEMA [None]
